FAERS Safety Report 13781997 (Version 1)
Quarter: 2017Q3

REPORT INFORMATION
  Report Type: Spontaneous
  Country: AU (occurrence: AU)
  Receive Date: 20170724
  Receipt Date: 20170724
  Transmission Date: 20171127
  Serious: Yes (Other)
  Sender: FDA-Public Use
  Company Number: AU-PFIZER INC-2017316163

PATIENT

DRUGS (3)
  1. FENTANYL. [Interacting]
     Active Substance: FENTANYL
     Dosage: UNK
  2. PRISTIQ EXTENDED-RELEASE [Suspect]
     Active Substance: DESVENLAFAXINE SUCCINATE
     Dosage: UNK
  3. ONDANSETRON [Interacting]
     Active Substance: ONDANSETRON
     Dosage: UNK

REACTIONS (2)
  - Serotonin syndrome [Unknown]
  - Drug interaction [Unknown]
